FAERS Safety Report 12583462 (Version 2)
Quarter: 2016Q3

REPORT INFORMATION
  Report Type: Spontaneous
  Country: MX (occurrence: MX)
  Receive Date: 20160722
  Receipt Date: 20160817
  Transmission Date: 20161109
  Serious: Yes (Hospitalization, Other)
  Sender: FDA-Public Use
  Company Number: MX-ELI_LILLY_AND_COMPANY-MX201607006581

PATIENT
  Sex: Female
  Weight: 74 kg

DRUGS (1)
  1. HUMALOG MIX75/25 [Suspect]
     Active Substance: INSULIN LISPRO
     Indication: PRODUCT USED FOR UNKNOWN INDICATION
     Dosage: 20 U, QD
     Route: 058
     Dates: start: 201604

REACTIONS (3)
  - Umbilical hernia [Unknown]
  - Cholecystitis infective [Recovered/Resolved]
  - Cholelithiasis [Unknown]
